FAERS Safety Report 10155862 (Version 2)
Quarter: 2014Q2

REPORT INFORMATION
  Report Type: Spontaneous
  Country: GB (occurrence: GB)
  Receive Date: 20140506
  Receipt Date: 20140522
  Transmission Date: 20141212
  Serious: Yes (Disabling, Congenital Anomaly)
  Sender: FDA-Public Use
  Company Number: GB-ACTAVIS-2014-08913

PATIENT
  Sex: Female

DRUGS (1)
  1. FLUOXETINE (UNKNOWN) [Suspect]
     Indication: DEPRESSION
     Dosage: UNK
     Route: 064
     Dates: end: 201101

REACTIONS (5)
  - Dysmorphism [Not Recovered/Not Resolved]
  - Head deformity [Not Recovered/Not Resolved]
  - Limb malformation [Not Recovered/Not Resolved]
  - Neck deformity [Not Recovered/Not Resolved]
  - Low birth weight baby [Unknown]
